FAERS Safety Report 24097141 (Version 4)
Quarter: 2024Q3

REPORT INFORMATION
  Report Type: Spontaneous
  Country: US (occurrence: US)
  Receive Date: 20240716
  Receipt Date: 20240913
  Transmission Date: 20241017
  Serious: Yes (Other)
  Sender: PFIZER
  Company Number: US-PFIZER INC-PV202400092048

PATIENT
  Age: 77 Year
  Sex: Female

DRUGS (1)
  1. TUKYSA [Suspect]
     Active Substance: TUCATINIB
     Dosage: TUKYSA 150 MG, TWO TABLETS TWICE A DAY

REACTIONS (3)
  - Kidney infection [Unknown]
  - Blood magnesium decreased [Unknown]
  - Blood potassium decreased [Unknown]
